FAERS Safety Report 7104963-5 (Version None)
Quarter: 2010Q4

REPORT INFORMATION
  Report Type: 
  Country: None (occurrence: None)
  Receive Date: 20101116
  Receipt Date: 20101103
  Transmission Date: 20110411
  Serious: Yes (Hospitalization, Other)
  Sender: FDA-Public Use
  Company Number: PHHY2010BR74745

PATIENT
  Sex: Female

DRUGS (1)
  1. FORASEQ [Suspect]
     Indication: EMPHYSEMA
     Dosage: 12/400 MCG, TWICE A DAY

REACTIONS (7)
  - ABASIA [None]
  - AMNESIA [None]
  - BEDRIDDEN [None]
  - CEREBROVASCULAR ACCIDENT [None]
  - DISEASE PROGRESSION [None]
  - EMPHYSEMA [None]
  - WALKING DISABILITY [None]
